FAERS Safety Report 6100708-6 (Version None)
Quarter: 2009Q1

REPORT INFORMATION
  Report Type: 
  Country: None (occurrence: None)
  Receive Date: 20090303
  Receipt Date: 20090218
  Transmission Date: 20090719
  Serious: Yes (Hospitalization)
  Sender: FDA-Public Use
  Company Number: PHHY2008GB24690

PATIENT
  Sex: Female

DRUGS (4)
  1. CLOZARIL [Suspect]
     Indication: SCHIZOPHRENIA
     Dosage: 250 MG DAILY
     Route: 048
     Dates: start: 20080730
  2. FOLIC ACID [Concomitant]
     Route: 048
  3. VENLAFAXINE HCL [Concomitant]
     Route: 048
  4. TOLTERODINE TARTRATE [Concomitant]
     Route: 048

REACTIONS (2)
  - DROP ATTACKS [None]
  - FOOT FRACTURE [None]
